FAERS Safety Report 21029591 (Version 7)
Quarter: 2022Q3

REPORT INFORMATION
  Report Type: Report from Study
  Country: US (occurrence: None)
  Receive Date: 20220630
  Receipt Date: 20220920
  Transmission Date: 20221027
  Serious: Yes (Hospitalization)
  Sender: FDA-Public Use
  Company Number: US-Eisai Medical Research-EC-2022-118162

PATIENT
  Age: 70 Year
  Sex: Male
  Weight: 68.6 kg

DRUGS (23)
  1. LENVATINIB [Suspect]
     Active Substance: LENVATINIB
     Indication: Clear cell renal cell carcinoma
     Dosage: STARTING DOSE AT 20 MG, FLUCTUATED DOSAGE
     Route: 048
     Dates: start: 20211124, end: 20220516
  2. LENVATINIB [Suspect]
     Active Substance: LENVATINIB
     Route: 048
     Dates: start: 20220728
  3. PEMBROLIZUMAB [Suspect]
     Active Substance: PEMBROLIZUMAB
     Indication: Clear cell renal cell carcinoma
     Route: 041
     Dates: start: 20211124, end: 20220405
  4. PEMBROLIZUMAB [Suspect]
     Active Substance: PEMBROLIZUMAB
     Route: 041
     Dates: start: 20220517, end: 20220517
  5. BELZUTIFAN [Suspect]
     Active Substance: BELZUTIFAN
     Indication: Clear cell renal cell carcinoma
     Dosage: STARTING DOSE AT 120 MG, FLUCTUATED DOSAGE
     Route: 048
     Dates: start: 20211124, end: 20220516
  6. BELZUTIFAN [Suspect]
     Active Substance: BELZUTIFAN
     Route: 048
     Dates: start: 20220805
  7. ZOFRAN [Concomitant]
     Active Substance: ONDANSETRON HYDROCHLORIDE
     Dates: start: 20211124
  8. LACTULOSE [Concomitant]
     Active Substance: LACTULOSE
     Dates: start: 20211117
  9. LACTULOSE [Concomitant]
     Active Substance: LACTULOSE
     Dates: start: 20211117
  10. OXYCODONE [Concomitant]
     Active Substance: OXYCODONE
     Dates: start: 20211117
  11. FINASTERIDE [Concomitant]
     Active Substance: FINASTERIDE
     Dates: start: 20210607
  12. XANAX [Concomitant]
     Active Substance: ALPRAZOLAM
     Dates: start: 20211108
  13. TYLENOL [Concomitant]
     Active Substance: ACETAMINOPHEN
     Dates: start: 20211111
  14. IBUPROFEN [Concomitant]
     Active Substance: IBUPROFEN
     Dates: start: 20211111
  15. CYANOCOBALAMIN [Concomitant]
     Active Substance: CYANOCOBALAMIN
     Dates: start: 20220223
  16. PEPCID [Concomitant]
     Active Substance: FAMOTIDINE
     Dates: start: 20211101
  17. MIRALAX [Concomitant]
     Active Substance: POLYETHYLENE GLYCOL 3350
     Dates: start: 20211115
  18. SENNA LEAF [Concomitant]
     Active Substance: SENNA LEAF
     Dates: start: 20211117
  19. K PHOS NEUTRAL [Concomitant]
     Active Substance: POTASSIUM PHOSPHATE, MONOBASIC\SODIUM PHOSPHATE, DIBASIC, ANHYDROUS\SODIUM PHOSPHATE, MONOBASIC, MON
     Dates: start: 20220202
  20. MELATONIN [Concomitant]
     Active Substance: MELATONIN
     Dates: start: 20220223
  21. ROSUVASTATIN [Concomitant]
     Active Substance: ROSUVASTATIN
     Dates: start: 20220405
  22. CORTICOSTEROID NOS [Concomitant]
     Active Substance: CORTICOSTEROID NOS
     Dates: start: 20220120
  23. TYLENOL PM EXTRA STRENGTH [Concomitant]
     Active Substance: ACETAMINOPHEN\DIPHENHYDRAMINE HYDROCHLORIDE
     Dates: start: 20211215

REACTIONS (1)
  - Haemophagocytic lymphohistiocytosis [Not Recovered/Not Resolved]

NARRATIVE: CASE EVENT DATE: 20220619
